FAERS Safety Report 21067131 (Version 1)
Quarter: 2022Q3

REPORT INFORMATION
  Report Type: Spontaneous
  Country: PL (occurrence: PL)
  Receive Date: 20220712
  Receipt Date: 20220712
  Transmission Date: 20221027
  Serious: Yes (Hospitalization, Other)
  Sender: FDA-Public Use
  Company Number: PL-VELOXIS PHARMACEUTICALS-2022VELPL-000443

PATIENT
  Age: 24 Year

DRUGS (3)
  1. TACROLIMUS [Suspect]
     Active Substance: TACROLIMUS
     Indication: Product used for unknown indication
     Dosage: 2 MILLIGRAM, QD (2X1MH)
     Dates: end: 20200207
  2. EUTHYROX [Concomitant]
     Active Substance: LEVOTHYROXINE SODIUM
     Indication: Product used for unknown indication
     Dosage: UNK
  3. SIROLIMUS [Concomitant]
     Active Substance: SIROLIMUS
     Indication: Product used for unknown indication
     Dosage: UNK

REACTIONS (7)
  - Cachexia [Unknown]
  - Graft versus host disease [Unknown]
  - Haematochezia [Unknown]
  - Rectal ulcer [Unknown]
  - Large intestinal ulcer [Unknown]
  - Transaminases increased [Unknown]
  - Nausea [Unknown]

NARRATIVE: CASE EVENT DATE: 20200120
